FAERS Safety Report 12923173 (Version 2)
Quarter: 2016Q4

REPORT INFORMATION
  Report Type: Spontaneous
  Country: US (occurrence: US)
  Receive Date: 20161109
  Receipt Date: 20161207
  Transmission Date: 20170207
  Serious: No
  Sender: FDA-Public Use
  Company Number: US-GLAXOSMITHKLINE-US2016161895

PATIENT

DRUGS (1)
  1. EXCEDRIN MIGRAINE [Suspect]
     Active Substance: ACETAMINOPHEN\ASPIRIN\CAFFEINE
     Indication: MIGRAINE
     Dosage: UNK
     Route: 048

REACTIONS (6)
  - Gastric disorder [Recovered/Resolved]
  - Drug ineffective [Unknown]
  - Overdose [Unknown]
  - Product quality issue [Unknown]
  - Dysgeusia [Recovered/Resolved]
  - Nausea [Recovered/Resolved]
